FAERS Safety Report 9436997 (Version 1)
Quarter: 2013Q3

REPORT INFORMATION
  Report Type: Spontaneous
  Country: US (occurrence: US)
  Receive Date: 20130802
  Receipt Date: 20130802
  Transmission Date: 20140515
  Serious: Yes (Hospitalization, Other)
  Sender: FDA-Public Use
  Company Number: US-PFIZER INC-2013224948

PATIENT
  Age: 59 Year
  Sex: Female
  Weight: 68 kg

DRUGS (3)
  1. LYRICA [Suspect]
     Indication: PAIN
     Dosage: UNK, AS NEEDED
     Route: 048
  2. TRAMADOL [Concomitant]
     Indication: PAIN
     Dosage: UNK
  3. NORTRIPTYLINE [Concomitant]
     Indication: PAIN
     Dosage: UNK

REACTIONS (6)
  - Intentional drug misuse [Unknown]
  - Convulsion [Unknown]
  - Loss of consciousness [Unknown]
  - Fall [Unknown]
  - Head injury [Unknown]
  - Skull fracture [Unknown]
